FAERS Safety Report 24058781 (Version 1)
Quarter: 2024Q3

REPORT INFORMATION
  Report Type: Report from Study
  Country: DE (occurrence: DE)
  Receive Date: 20240708
  Receipt Date: 20240708
  Transmission Date: 20241016
  Serious: Yes (Other)
  Sender: NORDIC PHARMA
  Company Number: DE-PFIZER INC-PV202400048520

PATIENT
  Age: 77 Year
  Sex: Female

DRUGS (2)
  1. METHOTREXATE SODIUM [Suspect]
     Active Substance: METHOTREXATE SODIUM
     Dosage: 7.5 MG, WEEKLY
     Dates: end: 202007
  2. XELJANZ [Concomitant]
     Active Substance: TOFACITINIB CITRATE
     Dosage: 5 MG, 1X/DAY

REACTIONS (1)
  - Acute myocardial infarction [Unknown]

NARRATIVE: CASE EVENT DATE: 20200601
